FAERS Safety Report 10011804 (Version 1)
Quarter: 2014Q1

REPORT INFORMATION
  Report Type: Spontaneous
  Country: US (occurrence: None)
  Receive Date: 20140312
  Receipt Date: 20140312
  Transmission Date: 20141002
  Serious: Yes (Hospitalization)
  Sender: FDA-Public Use
  Company Number: 2014STPI000085

PATIENT
  Age: 27 Year
  Sex: Male

DRUGS (20)
  1. ONCASPAR [Suspect]
     Indication: LYMPHOCYTIC LEUKAEMIA
     Dates: start: 20121211, end: 20130701
  2. VINCRISTINE SULFATE [Suspect]
     Indication: LYMPHOCYTIC LEUKAEMIA
     Route: 042
     Dates: start: 20120918, end: 20130522
  3. MERCAPTOPURINE [Suspect]
     Indication: LYMPHOCYTIC LEUKAEMIA
     Route: 048
     Dates: start: 20121023, end: 20130604
  4. DEXAMETHASONE [Suspect]
  5. DOXORUBICIN HYDROCHLORIDE [Suspect]
     Indication: LYMPHOCYTIC LEUKAEMIA
     Route: 042
     Dates: start: 20120918, end: 20130522
  6. ACYCYLOVIR (ACICLOVIR) [Concomitant]
  7. DICYCLOMINE HCL (DICYCLOVERINE HYDROCHLORIDE) [Concomitant]
  8. ENOXAPARIN SODIUM (ENOXAPARIN SODIUM) [Concomitant]
  9. FOLIC ACID (FOLIC ACID) [Concomitant]
  10. HYDROCORTISONE (HYDROCORTISONE) [Concomitant]
  11. LIDOCAINE HCL (LIDOCAINE HYDROCHLORIDE) [Concomitant]
  12. LORAZEPAM (LORAZEPAM) [Concomitant]
  13. ONDANSETRON HCL (ONDANSETRON HYDROCHLORIDE) [Concomitant]
  14. OXYCODONE HCL (OXYCODONE HYDROCHLORIDE) [Concomitant]
  15. RANITIDINE (RANITIDINE HYDROCHLORIDE) [Concomitant]
  16. BACTRIM (SULFAMETHOXAZOLE, TRIMETHOPRIM) [Concomitant]
  17. VANCOMYCIN HCL (VANCOMYCIN HYDROCHLORIDE) [Concomitant]
  18. ZOLPIDEM TARTRATE (ZOLPIDEM TARTRATE) [Concomitant]
  19. DOCUSATE SODIUM (DOCUSATE SODIUM) [Concomitant]
  20. LOPERAMIDE W/SIMETICONE (LOPERAMIDE W/SIMETICONE) [Concomitant]

REACTIONS (3)
  - Hepatic cirrhosis [None]
  - Pancytopenia [None]
  - Ascites [None]
